FAERS Safety Report 6293836-6 (Version None)
Quarter: 2009Q3

REPORT INFORMATION
  Report Type: 
  Country: None (occurrence: None)
  Receive Date: 20090803
  Receipt Date: 20090724
  Transmission Date: 20100115
  Serious: Yes (Death, Life-Threatening, Hospitalization)
  Sender: FDA-Public Use
  Company Number: JP-AMGEN-US356102

PATIENT
  Sex: Female
  Weight: 35 kg

DRUGS (18)
  1. ENBREL [Suspect]
     Indication: RHEUMATOID ARTHRITIS
     Route: 058
     Dates: start: 20070824, end: 20090609
  2. ACETYLSALICYLIC ACID/ALUMINIUM GLYCINATE/MAGNESIUM CARBONATE [Concomitant]
     Route: 048
     Dates: start: 20070821, end: 20090217
  3. CARDENALIN [Concomitant]
     Route: 048
     Dates: start: 20070821, end: 20090217
  4. LASIX [Concomitant]
     Route: 048
     Dates: start: 20070821
  5. MAGNESIUM OXIDE [Concomitant]
     Route: 048
     Dates: start: 20070821, end: 20090217
  6. AZULFIDINE EN-TABS [Concomitant]
     Indication: RHEUMATOID ARTHRITIS
     Route: 048
     Dates: start: 20070821, end: 20090217
  7. MOBIC [Concomitant]
     Route: 048
     Dates: start: 20070821, end: 20090217
  8. FAMOTIDINE [Concomitant]
     Route: 048
     Dates: start: 20070821, end: 20090217
  9. CYTOTEC [Concomitant]
     Route: 048
     Dates: start: 20070821, end: 20090217
  10. ALENDRONATE SODIUM [Concomitant]
     Route: 048
     Dates: start: 20070821, end: 20090217
  11. PURSENNID [Concomitant]
     Route: 048
     Dates: start: 20070821
  12. ISCOTIN [Concomitant]
     Route: 048
     Dates: start: 20070821
  13. ISODINE [Concomitant]
     Dosage: 30 ML GARGLE DAILY
     Route: 050
     Dates: start: 20070821, end: 20090207
  14. THEOPHYLLINE [Concomitant]
     Dosage: UNSPECIFIED
     Route: 048
  15. TULOBUTEROL HYDROCHLORIDE [Concomitant]
     Dosage: UNSPECIFIED DOSE TAP
     Route: 065
  16. NORVASC [Concomitant]
     Dosage: 5/DAY
     Route: 048
     Dates: start: 20070821, end: 20090217
  17. BUP-4 [Concomitant]
     Route: 048
     Dates: start: 20070821, end: 20090217
  18. PREDNISOLONE [Concomitant]
     Indication: RHEUMATOID ARTHRITIS
     Route: 048
     Dates: start: 20070821, end: 20090217

REACTIONS (9)
  - BLOOD UREA INCREASED [None]
  - CARDIAC FAILURE [None]
  - INSOMNIA [None]
  - NAUSEA [None]
  - PNEUMOCYSTIS JIROVECI PNEUMONIA [None]
  - POLLAKIURIA [None]
  - PYREXIA [None]
  - STRESS CARDIOMYOPATHY [None]
  - URINARY TRACT INFECTION [None]
